FAERS Safety Report 25323682 (Version 1)
Quarter: 2025Q2

REPORT INFORMATION
  Report Type: Spontaneous
  Country: GB (occurrence: GB)
  Receive Date: 20250516
  Receipt Date: 20250516
  Transmission Date: 20250716
  Serious: Yes (Other)
  Sender: TEVA
  Company Number: None

PATIENT
  Sex: Male

DRUGS (2)
  1. PREDNISOLONE [Suspect]
     Active Substance: PREDNISOLONE
     Indication: Product used for unknown indication
     Dosage: PREDNISOLONE 5MG (SIX TABS (TABLETS) ONCE A DAY FOR 5 DAYS),
     Route: 065
     Dates: start: 20250506
  2. DOXYCYCLINE [Suspect]
     Active Substance: DOXYCYCLINE
     Indication: Product used for unknown indication
     Dosage: DOXYCYCLINE 100MG (TWICE A DAY FOR 7 DAYS),
     Route: 065
     Dates: start: 20250506, end: 20250512

REACTIONS (3)
  - Photosensitivity reaction [Recovered/Resolved]
  - Hyperaesthesia [Not Recovered/Not Resolved]
  - Skin burning sensation [Not Recovered/Not Resolved]

NARRATIVE: CASE EVENT DATE: 20250510
